FAERS Safety Report 10773896 (Version 1)
Quarter: 2015Q1

REPORT INFORMATION
  Report Type: Report from Study
  Country: None (occurrence: US)
  Receive Date: 20150208
  Receipt Date: 20150208
  Transmission Date: 20150721
  Serious: Yes (Other)
  Sender: FDA-Public Use
  Company Number: US-BIOGEN USA-2014BI133199

PATIENT
  Sex: Female

DRUGS (1)
  1. TECFIDERA [Suspect]
     Active Substance: DIMETHYL FUMARATE
     Indication: MULTIPLE SCLEROSIS
     Route: 048

REACTIONS (4)
  - Pregnancy [None]
  - Caesarean section [None]
  - Abortion spontaneous [None]
  - Maternal exposure before pregnancy [None]

NARRATIVE: CASE EVENT DATE: 2014
